FAERS Safety Report 22257362 (Version 2)
Quarter: 2023Q2

REPORT INFORMATION
  Report Type: Report from Study
  Country: US (occurrence: US)
  Receive Date: 20230427
  Receipt Date: 20230428
  Transmission Date: 20230722
  Serious: Yes (Other)
  Sender: FDA-Public Use
  Company Number: US-ABBVIE-4743755

PATIENT
  Sex: Male
  Weight: 67 kg

DRUGS (2)
  1. DUOPA [Suspect]
     Active Substance: CARBIDOPA\LEVODOPA
     Indication: Parkinson^s disease
     Route: 050
     Dates: start: 201911, end: 202303
  2. DUOPA [Suspect]
     Active Substance: CARBIDOPA\LEVODOPA
     Dosage: FIRST ADMIN DATE-2023
     Route: 050

REACTIONS (2)
  - Intentional medical device removal by patient [Recovered/Resolved]
  - Stoma complication [Recovered/Resolved]

NARRATIVE: CASE EVENT DATE: 20230101
